FAERS Safety Report 11365448 (Version 1)
Quarter: 2015Q3

REPORT INFORMATION
  Report Type: Spontaneous
  Country: PL (occurrence: PL)
  Receive Date: 20150811
  Receipt Date: 20150811
  Transmission Date: 20151125
  Serious: Yes (Hospitalization)
  Sender: FDA-Public Use
  Company Number: PL-TEVA-584361ISR

PATIENT
  Age: 53 Year
  Sex: Male

DRUGS (3)
  1. VINCRISTINE TEVA [Suspect]
     Active Substance: VINCRISTINE
     Indication: LUNG NEOPLASM MALIGNANT
     Dosage: 1.4 MILLIGRAM DAILY;
     Route: 042
     Dates: start: 20150721, end: 20150721
  2. DOXORUBICINUM ACCORD [Suspect]
     Active Substance: DOXORUBICIN
     Indication: LUNG NEOPLASM MALIGNANT
     Dosage: 60.53 MILLIGRAM DAILY;
     Route: 042
     Dates: start: 20150721, end: 20150721
  3. ENDOXAN BAXTER [Suspect]
     Active Substance: CYCLOPHOSPHAMIDE
     Dosage: 1345 MILLIGRAM DAILY;
     Route: 042
     Dates: start: 20150721, end: 20150721

REACTIONS (4)
  - Leukopenia [Recovering/Resolving]
  - C-reactive protein increased [Recovering/Resolving]
  - Dyspnoea [Recovering/Resolving]
  - Asthenia [Recovering/Resolving]

NARRATIVE: CASE EVENT DATE: 20150730
